FAERS Safety Report 5328094-X (Version None)
Quarter: 2007Q2

REPORT INFORMATION
  Report Type: 
  Country: None (occurrence: None)
  Receive Date: 20070517
  Receipt Date: 20070517
  Transmission Date: 20071010
  Serious: Yes (Other)
  Sender: FDA-Public Use
  Company Number: US-GENENTECH-232422

PATIENT
  Age: 45 Year
  Sex: Female

DRUGS (4)
  1. HERCEPTIN [Suspect]
     Indication: BREAST CANCER METASTATIC
     Dosage: UNK, UNK
  2. AVASTIN [Suspect]
     Indication: BREAST CANCER METASTATIC
     Dosage: UNK, UNK
     Dates: start: 20060301
  3. TAXOTERE [Concomitant]
     Indication: BREAST CANCER METASTATIC
     Dosage: UNK, 1/WEEK
     Dates: start: 20040101
  4. FEMARA [Concomitant]
     Indication: BREAST CANCER METASTATIC

REACTIONS (2)
  - LOCALISED OEDEMA [None]
  - PLEURAL EFFUSION [None]
